FAERS Safety Report 18132754 (Version 9)
Quarter: 2021Q4

REPORT INFORMATION
  Report Type: Spontaneous
  Country: US (occurrence: US)
  Receive Date: 20200811
  Receipt Date: 20211014
  Transmission Date: 20220304
  Serious: Yes (Other)
  Sender: FDA-Public Use
  Company Number: US-ELI_LILLY_AND_COMPANY-US202008002270

PATIENT
  Age: 63 Year
  Sex: Female

DRUGS (9)
  1. CYMBALTA [Interacting]
     Active Substance: DULOXETINE HYDROCHLORIDE
     Indication: Product used for unknown indication
     Dosage: UNK UNK, UNKNOWN
     Route: 065
  2. SIMVASTATIN [Suspect]
     Active Substance: SIMVASTATIN
     Indication: Product used for unknown indication
     Dosage: UNK, UNKNOWN
     Route: 065
  3. TUKYSA [Suspect]
     Active Substance: TUCATINIB
     Indication: Breast cancer female
     Dosage: UNK UNK, BID (TWICE DAILY WITH FOOD)
     Route: 065
  4. TUKYSA [Suspect]
     Active Substance: TUCATINIB
     Dosage: UNK UNK, BID (TWICE DAILY WITH FOOD)
     Route: 065
  5. TUKYSA [Suspect]
     Active Substance: TUCATINIB
     Dosage: UNK UNK, BID (DOSE DECREASED)
     Route: 065
  6. XELODA [Concomitant]
     Active Substance: CAPECITABINE
     Indication: Product used for unknown indication
  7. HERCEPTIN [Concomitant]
     Active Substance: TRASTUZUMAB
     Indication: Product used for unknown indication
  8. GABAPENTIN [Concomitant]
     Active Substance: GABAPENTIN
     Indication: Product used for unknown indication
  9. CANNABIDIOL\HERBALS [Concomitant]
     Active Substance: CANNABIDIOL\HERBALS
     Indication: Product used for unknown indication

REACTIONS (31)
  - Bone neoplasm [Unknown]
  - Dehydration [Unknown]
  - Haemorrhoids [Unknown]
  - Fungal infection [Unknown]
  - Vitamin D decreased [Unknown]
  - Urinary tract infection [Unknown]
  - Balance disorder [Unknown]
  - Neuralgia [Unknown]
  - Drug interaction [Unknown]
  - Cystitis [Unknown]
  - Taste disorder [Unknown]
  - Pain [Unknown]
  - Arthropod bite [Unknown]
  - Platelet count decreased [Unknown]
  - Ulcer [Unknown]
  - Cerebral disorder [Unknown]
  - Night sweats [Unknown]
  - Stomatitis [Unknown]
  - Diarrhoea [Unknown]
  - Dry eye [Unknown]
  - Abdominal pain [Recovering/Resolving]
  - Pain in extremity [Unknown]
  - Blood pressure increased [Unknown]
  - Headache [Unknown]
  - Rash pruritic [Unknown]
  - Abdominal discomfort [Unknown]
  - Gait disturbance [Unknown]
  - Abdominal pain lower [Unknown]
  - Hypoaesthesia [Unknown]
  - Epistaxis [Unknown]
  - Rash [Unknown]
